FAERS Safety Report 8892589 (Version 1)
Quarter: 2012Q4

REPORT INFORMATION
  Report Type: Spontaneous
  Country: US (occurrence: None)
  Receive Date: 20121105
  Receipt Date: 20121105
  Transmission Date: 20130627
  Serious: Yes (Other)
  Sender: FDA-Public Use
  Company Number: None

PATIENT
  Age: 60 Year
  Sex: Female
  Weight: 65.7 kg

DRUGS (1)
  1. INCIVEK [Suspect]

REACTIONS (5)
  - Rash pruritic [None]
  - Drug reaction with eosinophilia and systemic symptoms [None]
  - Swelling face [None]
  - Body temperature increased [None]
  - Eosinophil percentage increased [None]
